FAERS Safety Report 19396828 (Version 1)
Quarter: 2021Q2

REPORT INFORMATION
  Report Type: Spontaneous
  Country: DE (occurrence: DE)
  Receive Date: 20210610
  Receipt Date: 20210610
  Transmission Date: 20210717
  Serious: Yes (Hospitalization)
  Sender: FDA-Public Use
  Company Number: DE-SUN PHARMACEUTICAL INDUSTRIES LTD-2021RR-299982

PATIENT
  Age: 79 Year
  Sex: Male

DRUGS (15)
  1. ACETYLSALICYLSAURE [Suspect]
     Active Substance: ASPIRIN
     Indication: PRODUCT USED FOR UNKNOWN INDICATION
     Dosage: 100 MG, 0?0?1?0, TABLETTEN ()
     Route: 048
  2. METOPROLOL. [Concomitant]
     Active Substance: METOPROLOL
     Indication: PRODUCT USED FOR UNKNOWN INDICATION
     Dosage: 47.5 MG, 1?0?1?0, TABLETTEN ()
     Route: 048
  3. SERTRALINE [Suspect]
     Active Substance: SERTRALINE HYDROCHLORIDE
     Indication: PRODUCT USED FOR UNKNOWN INDICATION
     Dosage: 50 MG, 1?0?0?0, TABLETTEN ()
     Route: 048
  4. SITAGLIPTIN [Concomitant]
     Active Substance: SITAGLIPTIN
     Indication: PRODUCT USED FOR UNKNOWN INDICATION
     Dosage: 25 MG, 1?0?0?0, TABLETTEN ()
     Route: 048
  5. AMLODIPIN [Concomitant]
     Active Substance: AMLODIPINE BESYLATE
     Indication: PRODUCT USED FOR UNKNOWN INDICATION
     Dosage: 5 MG, 0.5?0?0.5?0, TABLETTEN ()
     Route: 048
  6. FUSIDINSAURE [Concomitant]
     Indication: PRODUCT USED FOR UNKNOWN INDICATION
     Dosage: 20 MG/G, BEI BEDARF, SALBE ()
     Route: 003
  7. TORASEMID [Concomitant]
     Active Substance: TORSEMIDE
     Indication: PRODUCT USED FOR UNKNOWN INDICATION
     Dosage: 10 MG, 1?0?0?0, TABLETTEN ()
     Route: 048
  8. CLOTRIMAZOLE. [Concomitant]
     Active Substance: CLOTRIMAZOLE
     Indication: PRODUCT USED FOR UNKNOWN INDICATION
     Dosage: BEI BEDARF, SALBE ()
     Route: 003
  9. NATRIUMPICOSULFAT [Concomitant]
     Active Substance: SODIUM PICOSULFATE
     Indication: PRODUCT USED FOR UNKNOWN INDICATION
     Dosage: 3 GTT, BEI BEDARF, TROPFEN ()
     Route: 048
  10. CLOPIDOGREL [Suspect]
     Active Substance: CLOPIDOGREL BISULFATE
     Indication: PRODUCT USED FOR UNKNOWN INDICATION
     Dosage: 75 MG, 1?0?0?0, TABLETTEN ()
     Route: 048
  11. RAMIPRIL. [Concomitant]
     Active Substance: RAMIPRIL
     Indication: PRODUCT USED FOR UNKNOWN INDICATION
     Dosage: 5 MG, 1?0?0?0, TABLETTEN ()
     Route: 048
  12. ATORVASTATIN [Concomitant]
     Active Substance: ATORVASTATIN
     Indication: PRODUCT USED FOR UNKNOWN INDICATION
     Dosage: 20 MG, 0?0?0?4, TABLETTEN ()
     Route: 048
  13. MACROGOL/KALIUMCHLORID/NATRIUMCARBONAT/NATRIUMCHLORID [Concomitant]
     Indication: PRODUCT USED FOR UNKNOWN INDICATION
     Dosage: 1?0?0?0, PULVER ()
     Route: 048
  14. FENTANYL. [Concomitant]
     Active Substance: FENTANYL
     Indication: PRODUCT USED FOR UNKNOWN INDICATION
     Dosage: 25 MG, ALLE 3TAGE WECHSEL, PFLASTER TRANSDERMAL ()
     Route: 062
  15. INSULIN (HUMAN)/INSULIN?ISOPHAN (HUMAN) [Concomitant]
     Indication: PRODUCT USED FOR UNKNOWN INDICATION
     Dosage: 100 IE/ML, 28?0?20?0, INJEKTIONS?/INFUSIONSLOSUNG ()
     Route: 058

REACTIONS (2)
  - Medication error [Unknown]
  - Haematochezia [Recovering/Resolving]

NARRATIVE: CASE EVENT DATE: 20210315
